FAERS Safety Report 15472610 (Version 1)
Quarter: 2018Q4

REPORT INFORMATION
  Report Type: Spontaneous
  Country: AU (occurrence: AU)
  Receive Date: 20181008
  Receipt Date: 20181008
  Transmission Date: 20190205
  Serious: Yes (Other)
  Sender: FDA-Public Use
  Company Number: AU-TEVA-2018-AU-959965

PATIENT
  Age: 70 Year
  Sex: Female

DRUGS (12)
  1. EZETIMIBE W/SIMVASTATIN [Suspect]
     Active Substance: EZETIMIBE
     Dosage: 10/80MG MANE(AT MORNING)
     Route: 065
  2. OMEPRAZOLE. [Suspect]
     Active Substance: OMEPRAZOLE
     Dosage: 40 MG NOCTE(AT NIGHT)
  3. VENLAFAXINE [Suspect]
     Active Substance: VENLAFAXINE HYDROCHLORIDE
     Dosage: 75MG NOCTE
  4. CO-PLAVIX [Suspect]
     Active Substance: ASPIRIN\CLOPIDOGREL
     Dosage: 100/75MG MANE
  5. BISOPROLOL [Suspect]
     Active Substance: BISOPROLOL
     Dosage: 1.25MG BD(TWICE A DAY)
  6. DIGOXIN. [Suspect]
     Active Substance: DIGOXIN
     Dosage: 62.5MCG MANE
  7. SPIRONOLACTONE. [Suspect]
     Active Substance: SPIRONOLACTONE
     Dosage: 12.5MG MANE
  8. LOPERAMIDE [Suspect]
     Active Substance: LOPERAMIDE
     Dosage: WHEN NECESSARY
  9. ENTRESTO [Suspect]
     Active Substance: SACUBITRIL\VALSARTAN
     Dosage: 24/26MG MANE?49/51MG NOCTE
  10. FRUSEMIDE [Suspect]
     Active Substance: FUROSEMIDE
     Dosage: 40 MG BD
  11. THIAMINE. [Suspect]
     Active Substance: THIAMINE
     Dosage: 100MG MANE
  12. GTN [Suspect]
     Active Substance: NITROGLYCERIN
     Dosage: WHEN NECESSARY

REACTIONS (11)
  - Transient ischaemic attack [Unknown]
  - Depression [Unknown]
  - Diarrhoea [Unknown]
  - Chronic obstructive pulmonary disease [Unknown]
  - Abdominal pain [Unknown]
  - Ischaemic cardiomyopathy [Unknown]
  - Body mass index decreased [Unknown]
  - Muscle spasms [Unknown]
  - Cardiac failure [Unknown]
  - Dyslipidaemia [Unknown]
  - Myocardial infarction [Unknown]

NARRATIVE: CASE EVENT DATE: 2011
